FAERS Safety Report 24118198 (Version 1)
Quarter: 2024Q3

REPORT INFORMATION
  Report Type: Report from Study
  Country: KR (occurrence: KR)
  Receive Date: 20240722
  Receipt Date: 20240722
  Transmission Date: 20241017
  Serious: Yes (Death)
  Sender: ROCHE
  Company Number: KR-ROCHE-3517567

PATIENT

DRUGS (2)
  1. ATEZOLIZUMAB [Suspect]
     Active Substance: ATEZOLIZUMAB
     Indication: Hepatocellular carcinoma
     Route: 065
  2. BEVACIZUMAB [Suspect]
     Active Substance: BEVACIZUMAB
     Indication: Hepatocellular carcinoma
     Route: 065

REACTIONS (20)
  - Thyroid disorder [Unknown]
  - Skin toxicity [Unknown]
  - Proteinuria [Unknown]
  - Hypertension [Unknown]
  - Diabetes mellitus [Unknown]
  - Adrenal insufficiency [Unknown]
  - Colitis [Unknown]
  - Fatigue [Unknown]
  - Hepatotoxicity [Unknown]
  - Endocrine toxicity [Unknown]
  - Arthritis [Unknown]
  - Pneumonitis [Unknown]
  - Palmar-plantar erythrodysaesthesia syndrome [Unknown]
  - Haemorrhage [Unknown]
  - Thrombosis [Unknown]
  - Gastrointestinal haemorrhage [Fatal]
  - Multiple organ dysfunction syndrome [Fatal]
  - Haemorrhage intracranial [Fatal]
  - Duodenal ulcer perforation [Fatal]
  - Mesenteric vein thrombosis [Fatal]
